FAERS Safety Report 25492537 (Version 4)
Quarter: 2025Q3

REPORT INFORMATION
  Report Type: Spontaneous
  Country: US (occurrence: US)
  Receive Date: 20250630
  Receipt Date: 20250725
  Transmission Date: 20251020
  Serious: Yes (Hospitalization)
  Sender: UROGEN PHARMA
  Company Number: US-UROGEN PHARMA LTD.-2025-UGN-000118

PATIENT

DRUGS (5)
  1. JELMYTO [Suspect]
     Active Substance: MITOMYCIN
     Indication: Transitional cell cancer of the renal pelvis and ureter
     Dosage: 12 MILLILITER, ONCE A WEEK (INSTILLATION)
     Dates: start: 2025, end: 2025
  2. JELMYTO [Suspect]
     Active Substance: MITOMYCIN
     Dosage: 12 MILLILITER, ONCE A WEEK (INSTILLATION)
     Dates: start: 20250611, end: 20250611
  3. JELMYTO [Suspect]
     Active Substance: MITOMYCIN
     Dosage: 12 MILLILITER, ONCE A WEEK (INSTILLATION)
     Dates: start: 20250625, end: 20250625
  4. JELMYTO [Suspect]
     Active Substance: MITOMYCIN
     Dosage: 12 MILLILITER, ONCE A WEEK (INSTILLATION)
     Dates: start: 2025, end: 2025
  5. JELMYTO [Suspect]
     Active Substance: MITOMYCIN
     Dosage: 12 MILLILITER, ONCE A WEEK (INSTILLATION)
     Dates: start: 2025, end: 2025

REACTIONS (2)
  - Sepsis [Unknown]
  - Sepsis [Not Recovered/Not Resolved]

NARRATIVE: CASE EVENT DATE: 20250601
